FAERS Safety Report 12440992 (Version 6)
Quarter: 2017Q3

REPORT INFORMATION
  Report Type: Report from Study
  Country: JP (occurrence: JP)
  Receive Date: 20160607
  Receipt Date: 20170814
  Transmission Date: 20171127
  Serious: Yes (Death, Life-Threatening, Other)
  Sender: FDA-Public Use
  Company Number: JP-ALXN-A201604050AA

PATIENT
  Age: 11 Year
  Sex: Female
  Weight: 35 kg

DRUGS (8)
  1. SOLIRIS [Suspect]
     Active Substance: ECULIZUMAB
     Indication: HAEMOLYTIC URAEMIC SYNDROME
     Dosage: 600 MG, Q4D
     Route: 042
     Dates: start: 20160502, end: 20160506
  2. SOLIRIS [Suspect]
     Active Substance: ECULIZUMAB
     Dosage: 600 MG, Q3D
     Route: 042
     Dates: start: 20160506, end: 20160509
  3. SOLIRIS [Suspect]
     Active Substance: ECULIZUMAB
     Dosage: 300 MG, QD
     Route: 042
     Dates: start: 20160517, end: 20160522
  4. HANP [Concomitant]
     Active Substance: CARPERITIDE
     Indication: MYOCARDITIS
     Dosage: A PROPER DOSE,24HOURS
     Route: 042
     Dates: start: 20160202, end: 20160406
  5. CEFTRIAXONE. [Concomitant]
     Active Substance: CEFTRIAXONE
     Indication: INFECTION PROPHYLAXIS
     Dosage: 2 G, QD
     Route: 065
     Dates: start: 20160502, end: 20160507
  6. SOLIRIS [Suspect]
     Active Substance: ECULIZUMAB
     Dosage: 300 MG, QD
     Route: 042
     Dates: start: 20160510, end: 20160515
  7. ARGATROBAN MONOHYDRATE [Concomitant]
     Indication: MYOCARDITIS
     Dosage: A PROPER DOSE,24HOURS
     Route: 042
     Dates: start: 20160214, end: 20160703
  8. SOLIRIS [Suspect]
     Active Substance: ECULIZUMAB
     Dosage: 600 MG, QD
     Route: 042
     Dates: start: 20160516, end: 20160516

REACTIONS (6)
  - Corynebacterium infection [Recovering/Resolving]
  - Multiple organ dysfunction syndrome [Fatal]
  - Sepsis [Not Recovered/Not Resolved]
  - Drug ineffective [Unknown]
  - Inappropriate schedule of drug administration [Unknown]
  - Incorrect dose administered [Unknown]

NARRATIVE: CASE EVENT DATE: 20160502
